FAERS Safety Report 11357618 (Version 1)
Quarter: 2015Q3

REPORT INFORMATION
  Report Type: Spontaneous
  Country: US (occurrence: US)
  Receive Date: 20150803
  Receipt Date: 20150803
  Transmission Date: 20151125
  Serious: Yes (Other)
  Sender: FDA-Public Use
  Company Number: US-ELI_LILLY_AND_COMPANY-US201204005179

PATIENT
  Age: 9 Year
  Sex: Male
  Weight: 31.29 kg

DRUGS (4)
  1. DEPAKOTE [Interacting]
     Active Substance: DIVALPROEX SODIUM
  2. STRATTERA [Suspect]
     Active Substance: ATOMOXETINE HYDROCHLORIDE
     Indication: ATTENTION DEFICIT/HYPERACTIVITY DISORDER
     Dosage: 100 MG, BID
  3. VYVANSE [Interacting]
     Active Substance: LISDEXAMFETAMINE DIMESYLATE
     Dosage: 150 MG, QD
  4. CONCERTA [Interacting]
     Active Substance: METHYLPHENIDATE HYDROCHLORIDE
     Dosage: 54 MG, QD

REACTIONS (6)
  - Drug interaction [Unknown]
  - Heart rate increased [Unknown]
  - Psychomotor hyperactivity [Not Recovered/Not Resolved]
  - Tic [Unknown]
  - Hypertension [Not Recovered/Not Resolved]
  - Prescribed overdose [Recovered/Resolved]
